FAERS Safety Report 4997769-4 (Version None)
Quarter: 2006Q2

REPORT INFORMATION
  Report Type: 
  Country: None (occurrence: None)
  Receive Date: 20060505
  Receipt Date: 20060421
  Transmission Date: 20061013
  Serious: Yes (Hospitalization)
  Sender: FDA-Public Use
  Company Number: ZONI002314

PATIENT
  Age: 48 Year
  Sex: Female
  Weight: 83 kg

DRUGS (2)
  1. ZONEGRAN [Suspect]
     Indication: MIGRAINE
     Dosage: 100 MG, 1 IN 1 D, ORAL
     Route: 048
     Dates: start: 20060401, end: 20060415
  2. AXERT [Concomitant]

REACTIONS (1)
  - STEVENS-JOHNSON SYNDROME [None]
